FAERS Safety Report 20310123 (Version 1)
Quarter: 2022Q1

REPORT INFORMATION
  Report Type: Spontaneous
  Country: US (occurrence: None)
  Receive Date: 20220107
  Receipt Date: 20220107
  Transmission Date: 20220423
  Serious: Yes (Hospitalization)
  Sender: FDA-Public Use
  Company Number: None

PATIENT
  Sex: Male

DRUGS (13)
  1. DEFERASIROX [Suspect]
     Active Substance: DEFERASIROX
     Indication: Tuberculosis
     Dosage: OTHER FREQUENCY : EVERY MORNING;?
     Route: 048
     Dates: start: 20190509
  2. DEFERASIROX [Suspect]
     Active Substance: DEFERASIROX
     Dosage: OTHER FREQUENCY : EVERY MORNING ;?
     Route: 048
  3. ASPIRIN [Concomitant]
     Active Substance: ASPIRIN
  4. EXJADE [Concomitant]
     Active Substance: DEFERASIROX
  5. FISH OIL [Concomitant]
     Active Substance: FISH OIL
  6. FLUTICASONE SPR [Concomitant]
  7. FUROSEMIDE [Concomitant]
     Active Substance: FUROSEMIDE
  8. VITAMIN D [Concomitant]
     Active Substance: VITAMIN D NOS
  9. LUMIGAN [Concomitant]
     Active Substance: BIMATOPROST
  10. MAGNESIUM [Concomitant]
     Active Substance: MAGNESIUM
  11. MULTIPLE VIT [Concomitant]
  12. OMEPRAZOLE [Concomitant]
     Active Substance: OMEPRAZOLE
  13. RANITIDINE [Concomitant]
     Active Substance: RANITIDINE

REACTIONS (2)
  - Therapy interrupted [None]
  - Diarrhoea [None]
